FAERS Safety Report 7264428-7 (Version None)
Quarter: 2011Q1

REPORT INFORMATION
  Report Type: 
  Country: None (occurrence: None)
  Receive Date: 20110131
  Receipt Date: 20100909
  Transmission Date: 20110831
  Serious: Yes (Hospitalization)
  Sender: FDA-Public Use
  Company Number: US-BAYER-201012493NA

PATIENT
  Sex: Female
  Weight: 59 kg

DRUGS (5)
  1. YASMIN [Suspect]
     Indication: VAGINAL HAEMORRHAGE
     Dates: start: 20080301, end: 20080501
  2. NSAID'S [Concomitant]
  3. METRONIDAZOLE [Concomitant]
     Indication: FUNGAL INFECTION
     Dosage: UNK
     Route: 067
     Dates: start: 20080313
  4. YAZ [Suspect]
     Indication: PRODUCT USED FOR UNKNOWN INDICATION
     Dosage: UNK
     Dates: start: 20080301, end: 20080501
  5. UNCODEABLE ^UNCLASSIFIABLE^ [Concomitant]

REACTIONS (7)
  - PAIN [None]
  - DYSPNOEA [None]
  - CHEST PAIN [None]
  - PULMONARY EMBOLISM [None]
  - HYPOAESTHESIA [None]
  - SWELLING [None]
  - ANXIETY [None]
